FAERS Safety Report 23692169 (Version 1)
Quarter: 2024Q2

REPORT INFORMATION
  Report Type: Spontaneous
  Country: RU (occurrence: RU)
  Receive Date: 20240401
  Receipt Date: 20240401
  Transmission Date: 20240715
  Serious: Yes (Other)
  Sender: FDA-Public Use
  Company Number: RU-009507513-2403RUS007806

PATIENT
  Age: 62 Year
  Sex: Male
  Weight: 100 kg

DRUGS (2)
  1. PEMBROLIZUMAB [Suspect]
     Active Substance: PEMBROLIZUMAB
     Indication: Malignant melanoma
     Dosage: UNK
     Dates: start: 202307
  2. LENVATINIB MESYLATE [Suspect]
     Active Substance: LENVATINIB MESYLATE
     Indication: Malignant melanoma
     Dosage: TOTAL DAILY DOSE AT 20 MILLIGRAM
     Route: 048
     Dates: start: 202307

REACTIONS (14)
  - Pancreatitis [Unknown]
  - Rectal haemorrhage [Unknown]
  - Hypertension [Unknown]
  - Nail disorder [Unknown]
  - Nasal dryness [Unknown]
  - Dry mouth [Unknown]
  - Epistaxis [Unknown]
  - Platelet disorder [Unknown]
  - Vascular access site haemorrhage [Unknown]
  - Vascular access site haematoma [Unknown]
  - Suture related complication [Unknown]
  - Surgery [Unknown]
  - Suture insertion [Unknown]
  - Off label use [Unknown]
